FAERS Safety Report 4903048-3 (Version None)
Quarter: 2006Q1

REPORT INFORMATION
  Report Type: 
  Country: None (occurrence: None)
  Receive Date: 20060207
  Receipt Date: 20051124
  Transmission Date: 20060701
  Serious: Yes (Death)
  Sender: FDA-Public Use
  Company Number: 2005AP06107

PATIENT
  Age: 27492 Day
  Sex: Male
  Weight: 53 kg

DRUGS (14)
  1. IRESSA [Suspect]
     Indication: LUNG ADENOCARCINOMA
     Route: 048
     Dates: start: 20051023, end: 20051123
  2. IRESSA [Suspect]
     Indication: NON-SMALL CELL LUNG CANCER
     Route: 048
     Dates: start: 20051023, end: 20051123
  3. LUVOX [Concomitant]
     Indication: DEPRESSION
     Route: 048
     Dates: start: 20051002, end: 20051028
  4. ERYTHROCIN [Concomitant]
     Indication: CHRONIC OBSTRUCTIVE PULMONARY DISEASE
     Route: 048
     Dates: start: 20051003
  5. VERAPAMIL [Concomitant]
     Indication: TACHYARRHYTHMIA
     Route: 048
     Dates: start: 20051012, end: 20051120
  6. HYPEN [Concomitant]
     Indication: CANCER PAIN
     Route: 048
     Dates: start: 20051104
  7. PRIMPERAN INJ [Concomitant]
     Indication: NAUSEA
     Route: 048
     Dates: start: 20051113
  8. FRANDOL S [Concomitant]
     Indication: ANGINA PECTORIS
     Route: 048
  9. DILTIAZEM HCL [Concomitant]
     Indication: TACHYARRHYTHMIA
     Route: 048
  10. BUFFERIN [Concomitant]
     Indication: ANGINA PECTORIS
     Route: 048
  11. ROCORNAL [Concomitant]
     Indication: ANGINA PECTORIS
     Route: 048
  12. RADIOTHERAPY [Concomitant]
     Indication: NON-SMALL CELL LUNG CANCER
  13. DOCETAXEL [Concomitant]
     Indication: NON-SMALL CELL LUNG CANCER
     Dosage: 1 COURSE
     Dates: start: 20051011, end: 20051020
  14. CARBOPLATIN [Concomitant]
     Indication: NON-SMALL CELL LUNG CANCER
     Dosage: 1 COURSE
     Dates: start: 20051011, end: 20051021

REACTIONS (3)
  - HYPOXIA [None]
  - INTERSTITIAL LUNG DISEASE [None]
  - PLEURAL EFFUSION [None]
